FAERS Safety Report 15160760 (Version 2)
Quarter: 2018Q3

REPORT INFORMATION
  Report Type: Spontaneous
  Country: US (occurrence: US)
  Receive Date: 20180718
  Receipt Date: 20180801
  Transmission Date: 20181010
  Serious: No
  Sender: FDA-Public Use
  Company Number: US-HORIZON-PEN-0671-2018

PATIENT
  Age: 51 Year
  Sex: Female

DRUGS (1)
  1. PENNSAID [Suspect]
     Active Substance: DICLOFENAC SODIUM
     Indication: PHLEBITIS
     Dosage: ONLY USING ONE PUMP
     Dates: start: 20180625, end: 20180707

REACTIONS (3)
  - Off label use [Unknown]
  - Intentional product use issue [Unknown]
  - Application site exfoliation [Recovered/Resolved]

NARRATIVE: CASE EVENT DATE: 201807
